FAERS Safety Report 6125040-6 (Version None)
Quarter: 2009Q1

REPORT INFORMATION
  Report Type: 
  Country: None (occurrence: None)
  Receive Date: 20090318
  Receipt Date: 20090305
  Transmission Date: 20090719
  Serious: Yes (Death, Other)
  Sender: FDA-Public Use
  Company Number: CLOF-1000468

PATIENT

DRUGS (3)
  1. CLOLAR [Suspect]
     Indication: HAEMATOLOGICAL MALIGNANCY
     Dosage: 40 MG/M2, QDX5, INTRAVENOUS
     Route: 042
  2. MELPHALAN (MELPHALAN) [Suspect]
     Indication: HAEMATOLOGICAL MALIGNANCY
     Dosage: 140 MG/M2, QDX2
  3. TACROLIMUS [Concomitant]

REACTIONS (5)
  - MUCOSAL INFLAMMATION [None]
  - NEPHROPATHY TOXIC [None]
  - PULMONARY HAEMORRHAGE [None]
  - RENAL FAILURE [None]
  - THERAPEUTIC AGENT TOXICITY [None]
